FAERS Safety Report 16812751 (Version 1)
Quarter: 2019Q3

REPORT INFORMATION
  Report Type: Spontaneous
  Country: CA (occurrence: CA)
  Receive Date: 20190916
  Receipt Date: 20190916
  Transmission Date: 20191005
  Serious: Yes (Other)
  Sender: FDA-Public Use
  Company Number: CA-TEVA-2019-CA-1108077

PATIENT
  Age: 48 Year
  Sex: Male

DRUGS (12)
  1. BISOPROLOL [Concomitant]
     Active Substance: BISOPROLOL
     Dosage: 10 MILLIGRAM DAILY;
  2. DIAZEPAM. [Concomitant]
     Active Substance: DIAZEPAM
     Dosage: 10 MILLIGRAM DAILY;
  3. DICLOFENAC [Concomitant]
     Active Substance: DICLOFENAC
     Dosage: 100 MILLIGRAM DAILY;
  4. CENTRUM PERFORMANCE [ASCORBIC ACID; BETACAROTENE:BIOTIN:CALCIUM:CHROMI [Concomitant]
  5. ACETYLSALICYLIC ACID [Concomitant]
     Active Substance: ASPIRIN
  6. ATORVASTATIN CALCIUM. [Suspect]
     Active Substance: ATORVASTATIN CALCIUM
     Indication: PRODUCT USED FOR UNKNOWN INDICATION
     Dosage: 40 MILLIGRAM DAILY;
     Route: 065
  7. CITALOPRAM [Concomitant]
     Active Substance: CITALOPRAM HYDROBROMIDE
     Dosage: 20 MILLIGRAM DAILY;
  8. FOLIC ACID. [Concomitant]
     Active Substance: FOLIC ACID
  9. METHOTREXATE. [Concomitant]
     Active Substance: METHOTREXATE
  10. OMEGA 3 FISH OIL [FISH OIL] [Concomitant]
  11. HUMIRA [Concomitant]
     Active Substance: ADALIMUMAB
  12. ACETAMINOPHEN. [Concomitant]
     Active Substance: ACETAMINOPHEN

REACTIONS (4)
  - Mycobacterium tuberculosis complex test positive [Recovered/Resolved]
  - Depression [Recovered/Resolved]
  - Cardiac disorder [Recovered/Resolved]
  - Uveitis [Recovered/Resolved]
